FAERS Safety Report 22986822 (Version 2)
Quarter: 2023Q4

REPORT INFORMATION
  Report Type: Spontaneous
  Country: US (occurrence: US)
  Receive Date: 20230926
  Receipt Date: 20231010
  Transmission Date: 20240109
  Serious: Yes (Other)
  Sender: FDA-Public Use
  Company Number: US-PFIZER INC-PV202300157319

PATIENT
  Age: 80 Year
  Sex: Female
  Weight: 51.71 kg

DRUGS (2)
  1. BRAFTOVI [Suspect]
     Active Substance: ENCORAFENIB
     Indication: Malignant melanoma
     Dosage: 300 MG, DAILY (4 CAPSULES DAILY)
     Dates: end: 20230913
  2. MEKTOVI [Suspect]
     Active Substance: BINIMETINIB
     Indication: Malignant melanoma
     Dosage: 30 MG, 2X/DAY (2 TABLETS, 15 MILLIGRAMS EACH, EVERY 12 HOURS)
     Dates: end: 20230913

REACTIONS (13)
  - Urinary tract infection [Unknown]
  - Arthralgia [Unknown]
  - Joint swelling [Unknown]
  - Rash [Unknown]
  - Cough [Unknown]
  - Pyrexia [Unknown]
  - Diarrhoea [Unknown]
  - Vomiting [Unknown]
  - Nausea [Unknown]
  - Fatigue [Unknown]
  - Oedema [Unknown]
  - Headache [Unknown]
  - Gait disturbance [Unknown]
